FAERS Safety Report 8225622-1 (Version None)
Quarter: 2012Q1

REPORT INFORMATION
  Report Type: 
  Country: None (occurrence: None)
  Receive Date: 20120321
  Receipt Date: 20120315
  Transmission Date: 20120608
  Serious: Yes (Disabling, Other)
  Sender: FDA-Public Use
  Company Number: FR-GILEAD-2007-0013587

PATIENT
  Sex: Male

DRUGS (21)
  1. COMBIVIR [Suspect]
     Indication: HIV INFECTION
     Route: 048
     Dates: start: 20000901, end: 20060623
  2. NORVIR [Suspect]
     Route: 048
     Dates: start: 20040417
  3. KALETRA [Concomitant]
     Dates: start: 20030103
  4. FUZEON [Concomitant]
     Dates: start: 20030912
  5. NEURONTIN [Suspect]
     Indication: TRIGEMINAL NEURALGIA
     Dates: start: 20060101, end: 20060720
  6. INVIRASE [Concomitant]
     Route: 048
     Dates: start: 20060623
  7. FOSAMPRENAVIR CALCIUM [Suspect]
     Indication: HIV INFECTION
     Route: 048
     Dates: start: 20050329, end: 20060623
  8. ZIAGEN [Concomitant]
     Dates: start: 20041015
  9. AMITRIPTYLINE HCL [Concomitant]
     Dates: start: 20041015
  10. BACTRIM DS [Suspect]
     Dates: start: 20020318
  11. RETROVIR [Suspect]
     Dosage: UNK
     Dates: start: 19920101, end: 19970101
  12. INVIRASE [Concomitant]
     Indication: HIV INFECTION
     Route: 048
     Dates: start: 19970319
  13. RETROVIR [Suspect]
     Indication: HIV INFECTION
     Dosage: UNK
     Dates: start: 20060704
  14. BACTRIM [Suspect]
     Dates: start: 19981027
  15. NORVIR [Suspect]
     Indication: HIV INFECTION
     Route: 048
     Dates: start: 19990921
  16. REYATAZ [Concomitant]
     Dates: start: 20040417
  17. TERCIAN [Concomitant]
     Dates: start: 20041015
  18. VIREAD [Suspect]
     Indication: HIV INFECTION
     Dosage: UNK UNK, QD
     Route: 048
     Dates: start: 20060623
  19. VIREAD [Suspect]
     Route: 048
     Dates: start: 20020318
  20. RETROVIR [Suspect]
     Dosage: UNK
     Dates: start: 20050617
  21. LYRICA [Suspect]
     Indication: TRIGEMINAL NEURALGIA
     Dosage: UNK
     Dates: start: 20060623, end: 20060713

REACTIONS (6)
  - GLAUCOMA [None]
  - OPTIC NEUROPATHY [None]
  - TRIGEMINAL NEURALGIA [None]
  - ENCEPHALOPATHY [None]
  - OPTIC NEURITIS [None]
  - MONONEUROPATHY MULTIPLEX [None]
